FAERS Safety Report 5961408-6 (Version None)
Quarter: 2008Q4

REPORT INFORMATION
  Report Type: 
  Country: None (occurrence: None)
  Receive Date: 20081119
  Receipt Date: 20080619
  Transmission Date: 20090506
  Serious: Yes (Death, Hospitalization)
  Sender: FDA-Public Use
  Company Number: 2008US001622

PATIENT
  Sex: Male

DRUGS (10)
  1. AMBISOME [Suspect]
     Indication: MENINGITIS CRYPTOCOCCAL
     Dosage: 0.7 MG/KG, UID/QD, IV NOS
     Route: 042
     Dates: start: 20080321
  2. ROCEPHIN [Concomitant]
  3. GARAMYCIN (GENTAMICIN) INJECTION [Concomitant]
  4. TYLENOL (CAPLET) [Concomitant]
  5. FLUARIX (INFLUENZA VACCINE) INJECTION [Concomitant]
  6. SODIUM CHLORIDE [Concomitant]
  7. DILANTIN [Concomitant]
  8. RANDUM (METOCLORPAMIDE HYDROCHLORIDE) [Concomitant]
  9. RISPERDAL [Concomitant]
  10. ANCOBON [Concomitant]

REACTIONS (14)
  - AIDS ENCEPHALOPATHY [None]
  - CSF GLUCOSE DECREASED [None]
  - CSF PROTEIN INCREASED [None]
  - DYSPHAGIA [None]
  - DYSPNOEA [None]
  - GENERAL PHYSICAL HEALTH DETERIORATION [None]
  - HEPATIC ENCEPHALOPATHY [None]
  - MENTAL STATUS CHANGES [None]
  - PNEUMONIA [None]
  - PYREXIA [None]
  - RESPIRATORY FAILURE [None]
  - SALIVARY HYPERSECRETION [None]
  - SEPSIS SYNDROME [None]
  - SPEECH DISORDER [None]
